FAERS Safety Report 8523370-1 (Version None)
Quarter: 2012Q3

REPORT INFORMATION
  Report Type: 
  Country: None (occurrence: None)
  Receive Date: 20120720
  Receipt Date: 20120706
  Transmission Date: 20120928
  Serious: Yes (Hospitalization)
  Sender: FDA-Public Use
  Company Number: US-JNJFOC-20120507870

PATIENT
  Age: 62 Year
  Sex: Female
  Weight: 91 kg

DRUGS (20)
  1. FENOFIBRATE [Concomitant]
     Indication: HYPERCHOLESTEROLAEMIA
     Route: 048
     Dates: start: 20111216
  2. RANOLAZINE [Concomitant]
     Indication: CHEST DISCOMFORT
     Route: 048
     Dates: start: 20110408
  3. IBUPROFEN [Suspect]
     Route: 048
     Dates: start: 20111108, end: 20120422
  4. KLOR-CON [Concomitant]
     Indication: MINERAL SUPPLEMENTATION
     Route: 048
     Dates: start: 20111130
  5. LEVOCETIRIZINE DIHYDROCHLORIDE [Concomitant]
     Indication: SEASONAL ALLERGY
     Route: 048
     Dates: start: 20110323
  6. ACETYLSALICYLIC ACID SRT [Concomitant]
     Indication: CARDIOVASCULAR EVENT PROPHYLAXIS
     Dosage: ADULT LOW STRENGTH
     Route: 048
     Dates: start: 20120109
  7. PLAVIX [Concomitant]
     Indication: CORONARY ARTERY DISEASE
     Route: 048
     Dates: start: 20101012
  8. CRESTOR [Concomitant]
     Indication: HYPERCHOLESTEROLAEMIA
     Route: 048
     Dates: start: 20100810
  9. BUSPIRONE HCL [Concomitant]
     Indication: POST-TRAUMATIC STRESS DISORDER
     Route: 048
     Dates: start: 20111129
  10. PHENTERMINE HYDROCHLORIDE [Concomitant]
     Indication: WEIGHT DECREASED
     Route: 048
     Dates: start: 20110811
  11. NEXIUM [Concomitant]
     Route: 048
     Dates: start: 20111108, end: 20120422
  12. TOPROL-XL [Concomitant]
     Indication: HYPERTENSION
     Dosage: ONCE EVERY MORNING
     Route: 048
     Dates: start: 20100820
  13. IBUPROFEN [Suspect]
     Route: 048
     Dates: start: 20120424
  14. NEUROPAX [Concomitant]
     Indication: RESTLESS LEGS SYNDROME
     Route: 048
     Dates: start: 20110912
  15. IBUPROFEN [Suspect]
     Indication: OSTEOARTHRITIS
     Route: 048
     Dates: start: 20111108, end: 20120422
  16. NITRO-DUR [Concomitant]
     Indication: CHEST DISCOMFORT
     Route: 060
     Dates: start: 20110318
  17. NEXIUM [Concomitant]
     Indication: PROPHYLAXIS
     Route: 048
     Dates: start: 20120424
  18. IBUPROFEN [Suspect]
     Indication: RHEUMATOID ARTHRITIS
     Route: 048
     Dates: start: 20120424
  19. LASIX [Concomitant]
     Indication: OEDEMA
     Route: 048
     Dates: start: 20120322
  20. LEXAPRO [Concomitant]
     Indication: ANXIETY
     Route: 048
     Dates: start: 20100525

REACTIONS (3)
  - EPISTAXIS [None]
  - CHEST PAIN [None]
  - DYSPNOEA [None]
